FAERS Safety Report 13341957 (Version 1)
Quarter: 2017Q1

REPORT INFORMATION
  Report Type: Spontaneous
  Country: US (occurrence: US)
  Receive Date: 20170316
  Receipt Date: 20170316
  Transmission Date: 20170428
  Serious: Yes (Other)
  Sender: FDA-Public Use
  Company Number: US-ASTRAZENECA-2017SE26036

PATIENT
  Sex: Male
  Weight: 81.6 kg

DRUGS (1)
  1. LYNPARZA [Suspect]
     Active Substance: OLAPARIB
     Indication: PANCREATIC CARCINOMA
     Route: 048
     Dates: start: 20170206

REACTIONS (4)
  - Malignant neoplasm progression [Unknown]
  - Off label use [Unknown]
  - Dysphagia [Unknown]
  - Product use issue [Unknown]
